FAERS Safety Report 6115219-1 (Version None)
Quarter: 2009Q1

REPORT INFORMATION
  Report Type: 
  Country: None (occurrence: None)
  Receive Date: 20090313
  Receipt Date: 20090313
  Transmission Date: 20090719
  Serious: Yes (Other)
  Sender: FDA-Public Use
  Company Number: US-PFIZER INC-2008151706

PATIENT
  Sex: Female
  Weight: 59.874 kg

DRUGS (15)
  1. LYRICA [Suspect]
     Indication: BACK PAIN
     Dosage: 50 MG, 2X/DAY
     Route: 048
     Dates: start: 20081113, end: 20081203
  2. FOSAMAX [Concomitant]
     Indication: BLOOD PRESSURE INCREASED
     Dosage: UNK
  3. LISINOPRIL [Concomitant]
     Indication: BLOOD PRESSURE INCREASED
     Dosage: UNK
  4. TRIAMTERENE [Concomitant]
     Indication: BLOOD PRESSURE INCREASED
     Dosage: UNK
  5. SIMVASTATIN [Concomitant]
     Indication: BLOOD CHOLESTEROL INCREASED
     Dosage: UNK
  6. BUDESONIDE [Concomitant]
     Indication: DIARRHOEA
     Dosage: UNK
  7. ALL OTHER THERAPEUTIC PRODUCTS [Concomitant]
     Dosage: UNK
  8. CLARITIN [Concomitant]
     Indication: HYPERSENSITIVITY
     Dosage: UNK
  9. FISH OIL [Concomitant]
     Dosage: UNK
  10. ALL OTHER THERAPEUTIC PRODUCTS [Concomitant]
     Indication: MACULAR DEGENERATION
     Dosage: UNK
  11. RESTORIL [Concomitant]
     Indication: SLEEP DISORDER
     Dosage: UNK
  12. ADVIL [Concomitant]
     Indication: SLEEP DISORDER
     Dosage: UNK
  13. MULTI-VITAMINS [Concomitant]
     Dosage: UNK
  14. CHANTIX [Concomitant]
     Dosage: UNK
  15. LUTEIN [Concomitant]
     Dosage: UNK

REACTIONS (2)
  - BLOOD PRESSURE INCREASED [None]
  - WEIGHT INCREASED [None]
